FAERS Safety Report 4639326-5 (Version None)
Quarter: 2005Q2

REPORT INFORMATION
  Report Type: 
  Country: None (occurrence: None)
  Receive Date: 20050418
  Receipt Date: 20050404
  Transmission Date: 20051028
  Serious: Yes (Other)
  Sender: FDA-Public Use
  Company Number: 2005055261

PATIENT
  Sex: Female
  Weight: 144.2439 kg

DRUGS (5)
  1. DEPO-PROVERA [Suspect]
     Indication: CONTRACEPTION
     Dosage: (150 MG, Q3M INTERVAL:  EVERY 3 MONTHS), INTRAMUSCULAR
     Route: 042
     Dates: start: 20010601
  2. GEMFIBROZIL [Concomitant]
  3. VALPROATE SODIUM [Concomitant]
  4. LANSOPRAZOLE [Concomitant]
  5. AXOTAL (OLD FORM) (BUTALBITAL, CAFFEINE, PARACETAMOL) [Concomitant]

REACTIONS (5)
  - ABDOMINAL PAIN [None]
  - BLOOD CHOLESTEROL INCREASED [None]
  - HYPERTRIGLYCERIDAEMIA [None]
  - METABOLIC SYNDROME [None]
  - WEIGHT INCREASED [None]
